FAERS Safety Report 4509798-5 (Version None)
Quarter: 2004Q4

REPORT INFORMATION
  Report Type: 
  Country: None (occurrence: None)
  Receive Date: 20041124
  Receipt Date: 20040726
  Transmission Date: 20050328
  Serious: No
  Sender: FDA-Public Use
  Company Number: US-BRISTOL-MYERS SQUIBB COMPANY-12651857

PATIENT
  Age: 83 Year
  Sex: Female
  Weight: 64 kg

DRUGS (4)
  1. AVALIDE [Suspect]
     Indication: HYPERTENSION
     Dosage: DURATION: ^SEVERAL YEARS^ 150MG/12.5MG (1/2 TABLET DAILY) INCR.1 TAB 2X PER DAY
     Route: 048
  2. TOPROL-XL [Concomitant]
  3. FOSAMAX [Concomitant]
  4. VIOXX [Concomitant]

REACTIONS (3)
  - ANXIETY [None]
  - BLOOD PRESSURE INCREASED [None]
  - NERVOUSNESS [None]
